FAERS Safety Report 19245277 (Version 1)
Quarter: 2021Q2

REPORT INFORMATION
  Report Type: Spontaneous
  Country: US (occurrence: US)
  Receive Date: 20210511
  Receipt Date: 20210511
  Transmission Date: 20210717
  Serious: No
  Sender: FDA-Public Use
  Company Number: US-P+L DEVELOPMENTS OF NEWYORK CORPORATION-2110449

PATIENT
  Sex: Male

DRUGS (1)
  1. NICOTINE POLACRILEX [Suspect]
     Active Substance: NICOTINE
     Indication: PRODUCT USED FOR UNKNOWN INDICATION
     Route: 048

REACTIONS (4)
  - Gastric pH decreased [Unknown]
  - Wrong technique in product usage process [Unknown]
  - Drug level increased [Unknown]
  - Gastrointestinal hypermotility [Unknown]
